FAERS Safety Report 21302771 (Version 1)
Quarter: 2022Q3

REPORT INFORMATION
  Report Type: Spontaneous
  Country: CA (occurrence: CA)
  Receive Date: 20220907
  Receipt Date: 20220907
  Transmission Date: 20221027
  Serious: Yes (Life-Threatening, Hospitalization)
  Sender: FDA-Public Use
  Company Number: CA-PFIZER INC-202201135366

PATIENT
  Age: 60 Year
  Sex: Male

DRUGS (21)
  1. HEPARIN SODIUM [Suspect]
     Active Substance: HEPARIN SODIUM
     Dosage: 5000 IU, 2X/DAY
     Route: 058
  2. AMIODARONE [Concomitant]
     Active Substance: AMIODARONE
  3. ASPIRIN [Concomitant]
     Active Substance: ASPIRIN
  4. BRILINTA [Concomitant]
     Active Substance: TICAGRELOR
  5. CRESTOR [Concomitant]
     Active Substance: ROSUVASTATIN CALCIUM
  6. FAMOTIDINE [Concomitant]
     Active Substance: FAMOTIDINE
  7. FENTANYL [Concomitant]
     Active Substance: FENTANYL
  8. FLUOXETINE [Concomitant]
     Active Substance: FLUOXETINE HYDROCHLORIDE
  9. FUROSEMIDE [Concomitant]
     Active Substance: FUROSEMIDE
  10. HYDROCORTISONE [Concomitant]
     Active Substance: HYDROCORTISONE
  11. INSULIN NOS [Concomitant]
     Active Substance: INSULIN NOS
  12. KCL [Concomitant]
     Active Substance: POTASSIUM CHLORIDE
  13. LEVOPHED [Concomitant]
     Active Substance: NOREPINEPHRINE BITARTRATE
  14. LIDOCAINE [Concomitant]
     Active Substance: LIDOCAINE
  15. MEROPENEM [Concomitant]
     Active Substance: MEROPENEM
  16. PANTOPRAZOLE SODIUM [Concomitant]
     Active Substance: PANTOPRAZOLE SODIUM
  17. PRESSYN AR [Concomitant]
  18. PROPOFOL [Concomitant]
     Active Substance: PROPOFOL
     Route: 065
  19. SOLU-CORTEF [Concomitant]
     Active Substance: HYDROCORTISONE SODIUM SUCCINATE
  20. TYLENOL [Concomitant]
     Active Substance: ACETAMINOPHEN
  21. VERSED [Concomitant]
     Active Substance: MIDAZOLAM HYDROCHLORIDE

REACTIONS (1)
  - Heparin-induced thrombocytopenia [Unknown]
